FAERS Safety Report 12440632 (Version 1)
Quarter: 2016Q2

REPORT INFORMATION
  Report Type: Spontaneous
  Country: None (occurrence: PL)
  Receive Date: 20160606
  Receipt Date: 20160606
  Transmission Date: 20160815
  Serious: Yes (Other)
  Sender: FDA-Public Use
  Company Number: PL-ALLERGAN-1659091US

PATIENT
  Age: 39 Year
  Sex: Female

DRUGS (1)
  1. LEVOSERT [Suspect]
     Active Substance: LEVONORGESTREL
     Indication: CONTRACEPTION
     Dosage: 52-MG IUS
     Route: 015
     Dates: start: 20160417, end: 20160516

REACTIONS (3)
  - Haemorrhage [Unknown]
  - Device dislocation [Unknown]
  - Abdominal pain [Unknown]
